FAERS Safety Report 10094185 (Version 1)
Quarter: 2014Q2

REPORT INFORMATION
  Report Type: Spontaneous
  Country: US (occurrence: None)
  Receive Date: 20140418
  Receipt Date: 20140418
  Transmission Date: 20141212
  Serious: Yes (Hospitalization)
  Sender: FDA-Public Use
  Company Number: 14AE017

PATIENT
  Age: 16 Month
  Sex: Female

DRUGS (1)
  1. KIRKLAND SIGNATURE IBUPROFEN [Suspect]
     Indication: ACCIDENTAL OVERDOSE
     Dosage: 16-24 BY MOUTH/ONCE
     Dates: start: 20120918

REACTIONS (3)
  - Accidental exposure to product by child [None]
  - Incorrect dose administered [None]
  - Cardiopulmonary failure [None]
